FAERS Safety Report 14954712 (Version 10)
Quarter: 2019Q3

REPORT INFORMATION
  Report Type: Spontaneous
  Country: US (occurrence: US)
  Receive Date: 20180530
  Receipt Date: 20190708
  Transmission Date: 20191004
  Serious: Yes (Hospitalization)
  Sender: FDA-Public Use
  Company Number: US-ACTELION-A-NJ2018-172995

PATIENT
  Age: 28 Year
  Sex: Male
  Weight: 96.15 kg

DRUGS (4)
  1. VELETRI [Suspect]
     Active Substance: EPOPROSTENOL
     Dosage: 30.7 NG/KG, PER MIN
     Route: 042
  2. TRACLEER [Suspect]
     Active Substance: BOSENTAN
     Indication: PULMONARY ARTERIAL HYPERTENSION
     Dosage: 125 MG, BID
     Route: 048
     Dates: start: 20160309
  3. VELETRI [Suspect]
     Active Substance: EPOPROSTENOL
     Dosage: 44.7 NG/KG, PER MIN
     Route: 042
  4. VELETRI [Suspect]
     Active Substance: EPOPROSTENOL
     Indication: PULMONARY ARTERIAL HYPERTENSION
     Dosage: 26.7 NG/KG, PER MIN
     Route: 042

REACTIONS (11)
  - Pulmonary hypertension [Unknown]
  - Disease complication [Unknown]
  - Skin disorder [Unknown]
  - Cardiomegaly [Unknown]
  - Malaise [Unknown]
  - Device leakage [Unknown]
  - Device issue [Unknown]
  - Oedema peripheral [Unknown]
  - Catheter placement [Unknown]
  - Device breakage [Recovered/Resolved]
  - Condition aggravated [Unknown]

NARRATIVE: CASE EVENT DATE: 20180520
